FAERS Safety Report 7376398-1 (Version None)
Quarter: 2011Q1

REPORT INFORMATION
  Report Type: 
  Country: None (occurrence: None)
  Receive Date: 20110325
  Receipt Date: 20110228
  Transmission Date: 20110831
  Serious: No
  Sender: FDA-Public Use
  Company Number: US-BAYER-2011-019313

PATIENT
  Sex: Female

DRUGS (2)
  1. BEYAZ [Suspect]
     Dosage: UNK
     Route: 048
     Dates: start: 20110226
  2. YAZ [Suspect]

REACTIONS (1)
  - VAGINAL HAEMORRHAGE [None]
